FAERS Safety Report 6970678 (Version 3)
Quarter: 2013Q2

REPORT INFORMATION
  Report Type: Spontaneous
  Country: US (occurrence: US)
  Receive Date: 20090416
  Receipt Date: 20130621
  Transmission Date: 20140414
  Serious: Yes (Other)
  Sender: FDA-Public Use
  Company Number: US-BIOGENIDEC-2009BI011073

PATIENT
  Age: 48 Year
  Sex: Female
  Weight: 80 kg

DRUGS (3)
  1. AVONEX [Suspect]
     Indication: MULTIPLE SCLEROSIS
     Route: 030
     Dates: start: 2001, end: 200607
  2. TYSABRI [Concomitant]
     Indication: MULTIPLE SCLEROSIS
     Route: 042
     Dates: start: 200502, end: 200502
  3. TYSABRI [Concomitant]
     Indication: MULTIPLE SCLEROSIS
     Route: 042
     Dates: start: 2006

REACTIONS (6)
  - Malignant melanoma in situ [Recovered/Resolved]
  - Drug intolerance [Unknown]
  - Melanocytic naevus [Unknown]
  - Multiple sclerosis relapse [Recovered/Resolved]
  - Influenza like illness [Unknown]
  - Drug ineffective [Unknown]
